FAERS Safety Report 18214245 (Version 3)
Quarter: 2020Q4

REPORT INFORMATION
  Report Type: Spontaneous
  Country: RU (occurrence: RU)
  Receive Date: 20200831
  Receipt Date: 20201105
  Transmission Date: 20210113
  Serious: Yes (Hospitalization)
  Sender: FDA-Public Use
  Company Number: RU-AMGEN-RUSSP2020137794

PATIENT
  Age: 9 Year
  Sex: Male

DRUGS (1)
  1. NPLATE [Suspect]
     Active Substance: ROMIPLOSTIM
     Indication: PRODUCT USED FOR UNKNOWN INDICATION
     Dosage: UNK
     Route: 065

REACTIONS (2)
  - Therapeutic product effect decreased [Unknown]
  - Unevaluable event [Unknown]

NARRATIVE: CASE EVENT DATE: 202002
